FAERS Safety Report 21485600 (Version 1)
Quarter: 2022Q4

REPORT INFORMATION
  Report Type: Spontaneous
  Country: HR (occurrence: HR)
  Receive Date: 20221020
  Receipt Date: 20221020
  Transmission Date: 20230113
  Serious: Yes (Other)
  Sender: FDA-Public Use
  Company Number: HR-FreseniusKabi-FK202213603

PATIENT
  Age: 3 Year
  Sex: Female

DRUGS (2)
  1. ADALIMUMAB [Suspect]
     Active Substance: ADALIMUMAB
     Indication: Juvenile idiopathic arthritis
     Route: 058
  2. METHOTREXATE [Suspect]
     Active Substance: METHOTREXATE
     Indication: Juvenile idiopathic arthritis

REACTIONS (5)
  - Hepatomegaly [Unknown]
  - Transaminases increased [Unknown]
  - Abdominal pain [Unknown]
  - Epstein-Barr virus infection [Recovering/Resolving]
  - Lymphocytosis [Unknown]
